FAERS Safety Report 8294432-1 (Version None)
Quarter: 2012Q2

REPORT INFORMATION
  Report Type: 
  Country: None (occurrence: None)
  Receive Date: 20120418
  Receipt Date: 20120411
  Transmission Date: 20120825
  Serious: Yes (Life-Threatening, Hospitalization, Other)
  Sender: FDA-Public Use
  Company Number: CA-CELGENEUS-028-21880-10111938

PATIENT
  Age: 78 Year
  Sex: Female

DRUGS (4)
  1. TOBRAMYCIN [Suspect]
     Indication: FEBRILE NEUTROPENIA
     Route: 042
     Dates: start: 20101104, end: 20101105
  2. REVLIMID [Suspect]
     Indication: MYELODYSPLASTIC SYNDROME
     Dosage: 25 MILLIGRAM
     Route: 048
     Dates: start: 20101029, end: 20101109
  3. VELCADE [Concomitant]
     Route: 041
  4. ANCEF [Suspect]
     Indication: FEBRILE NEUTROPENIA
     Route: 042
     Dates: start: 20101104, end: 20101105

REACTIONS (4)
  - FEBRILE NEUTROPENIA [None]
  - RASH MACULO-PAPULAR [None]
  - ANGIOEDEMA [None]
  - NEUROPATHY PERIPHERAL [None]
